FAERS Safety Report 8056791-4 (Version None)
Quarter: 2012Q1

REPORT INFORMATION
  Report Type: 
  Country: None (occurrence: None)
  Receive Date: 20120119
  Receipt Date: 20120116
  Transmission Date: 20120608
  Serious: Yes (Other)
  Sender: FDA-Public Use
  Company Number: CO-GLAXOSMITHKLINE-A0961658A

PATIENT
  Sex: Female
  Weight: 70 kg

DRUGS (2)
  1. CAPECITABINE [Suspect]
     Indication: BREAST CANCER METASTATIC
     Dosage: 3MG PER DAY
     Route: 048
  2. LAPATINIB [Suspect]
     Indication: BREAST CANCER METASTATIC
     Dosage: 1250MG PER DAY
     Route: 048

REACTIONS (1)
  - DEEP VEIN THROMBOSIS [None]
